FAERS Safety Report 6838047-8 (Version None)
Quarter: 2010Q3

REPORT INFORMATION
  Report Type: 
  Country: None (occurrence: None)
  Receive Date: 20100713
  Receipt Date: 20070529
  Transmission Date: 20110219
  Serious: No
  Sender: FDA-Public Use
  Company Number: US-PFIZER INC-2007045661

PATIENT
  Sex: Female
  Weight: 127 kg

DRUGS (10)
  1. CHANTIX [Suspect]
     Indication: SMOKING CESSATION THERAPY
     Dates: start: 20070524
  2. CYMBALTA [Interacting]
     Indication: DEPRESSION
  3. LORTAB [Interacting]
     Indication: ARTHRALGIA
  4. DIOVAN HCT [Concomitant]
  5. LOTREL [Concomitant]
  6. ACTOS [Concomitant]
  7. GLYBURIDE [Concomitant]
  8. LIPITOR [Concomitant]
  9. XANAX [Concomitant]
     Indication: ANXIETY
  10. KLONOPIN [Concomitant]
     Indication: ANXIETY
     Dosage: DAILY

REACTIONS (7)
  - ABNORMAL DREAMS [None]
  - ANXIETY [None]
  - ARTHRALGIA [None]
  - CRYING [None]
  - DEPRESSION [None]
  - DRUG INTERACTION [None]
  - EMOTIONAL DISORDER [None]
